FAERS Safety Report 24872298 (Version 1)
Quarter: 2025Q1

REPORT INFORMATION
  Report Type: Report from Study
  Country: US (occurrence: None)
  Receive Date: 20250122
  Receipt Date: 20250122
  Transmission Date: 20250409
  Serious: Yes (Hospitalization, Other)
  Sender: UNICHEM
  Company Number: US-Unichem Pharmaceuticals (USA) Inc-UCM202501-000075

PATIENT
  Age: 23 Year
  Sex: Female

DRUGS (6)
  1. TRAMADOL HCL [Suspect]
     Active Substance: TRAMADOL HYDROCHLORIDE
     Indication: Product used for unknown indication
  2. SERTRALINE [Suspect]
     Active Substance: SERTRALINE HYDROCHLORIDE
     Indication: Product used for unknown indication
  3. DIAZEPAM [Suspect]
     Active Substance: DIAZEPAM
     Indication: Product used for unknown indication
  4. CODEINE [Suspect]
     Active Substance: CODEINE
     Indication: Product used for unknown indication
  5. PREGABALIN [Suspect]
     Active Substance: PREGABALIN
     Indication: Product used for unknown indication
  6. CANNABIS SATIVA FLOWERING TOP [Suspect]
     Active Substance: CANNABIS SATIVA FLOWERING TOP
     Indication: Product used for unknown indication

REACTIONS (11)
  - Agitation [Unknown]
  - Aggression [Unknown]
  - Depressed level of consciousness [Unknown]
  - Anger [Unknown]
  - Dysarthria [Unknown]
  - Gait disturbance [Unknown]
  - Pneumonia [Unknown]
  - Drug abuse [Unknown]
  - Drug interaction [Unknown]
  - Toxicity to various agents [Unknown]
  - Accidental overdose [Unknown]

NARRATIVE: CASE EVENT DATE: 20191127
